FAERS Safety Report 23759499 (Version 1)
Quarter: 2024Q2

REPORT INFORMATION
  Report Type: Spontaneous
  Country: US (occurrence: None)
  Receive Date: 20240418
  Receipt Date: 20240418
  Transmission Date: 20240716
  Serious: No
  Sender: FDA-Public Use
  Company Number: US-ROCHE-3472862

PATIENT
  Sex: Female

DRUGS (2)
  1. ESBRIET [Suspect]
     Active Substance: PIRFENIDONE
     Indication: Interstitial lung disease
     Route: 048
     Dates: start: 202310
  2. ESBRIET [Suspect]
     Active Substance: PIRFENIDONE
     Indication: Hypersensitivity pneumonitis

REACTIONS (3)
  - Cough [Unknown]
  - Insomnia [Unknown]
  - Muscle spasms [Unknown]
